FAERS Safety Report 5832777-2 (Version None)
Quarter: 2008Q3

REPORT INFORMATION
  Report Type: 
  Country: None (occurrence: None)
  Receive Date: 20080731
  Receipt Date: 20080722
  Transmission Date: 20090109
  Serious: Yes (Death)
  Sender: FDA-Public Use
  Company Number: 2008-02137

PATIENT
  Age: 69 Year
  Sex: Female

DRUGS (2)
  1. VELCADE [Suspect]
     Indication: MULTIPLE MYELOMA
     Dosage: 1.3 MG/M2 INTRAVENOUS; 1 MG/M2 INTRAVENOUS
     Route: 042
     Dates: start: 20080530, end: 20080602
  2. VELCADE [Suspect]
     Indication: MULTIPLE MYELOMA
     Dosage: 1.3 MG/M2 INTRAVENOUS; 1 MG/M2 INTRAVENOUS
     Route: 042
     Dates: start: 20080606, end: 20080606

REACTIONS (2)
  - ILEUS PARALYTIC [None]
  - SEPTIC SHOCK [None]
